FAERS Safety Report 16427309 (Version 1)
Quarter: 2019Q3

REPORT INFORMATION
  Report Type: Spontaneous
  Country: US (occurrence: US)
  Receive Date: 20190612
  Receipt Date: 20190612
  Transmission Date: 20191004
  Serious: Yes (Life-Threatening)
  Sender: FDA-Public Use
  Company Number: None

PATIENT
  Age: 40 Year
  Sex: Female
  Weight: 42.75 kg

DRUGS (1)
  1. SERTRALINE [Suspect]
     Active Substance: SERTRALINE HYDROCHLORIDE
     Indication: DEPRESSION
     Dates: start: 20180628, end: 20180715

REACTIONS (4)
  - Inability to afford medication [None]
  - Agoraphobia [None]
  - Suicidal ideation [None]
  - Weight decreased [None]

NARRATIVE: CASE EVENT DATE: 20180629
